FAERS Safety Report 6880580-7 (Version None)
Quarter: 2010Q3

REPORT INFORMATION
  Report Type: 
  Country: None (occurrence: None)
  Receive Date: 20100727
  Receipt Date: 20090615
  Transmission Date: 20110219
  Serious: No
  Sender: FDA-Public Use
  Company Number: A0792097A

PATIENT
  Sex: Female

DRUGS (6)
  1. ZANTAC [Suspect]
     Indication: PRODUCT USED FOR UNKNOWN INDICATION
     Route: 065
  2. IBUPROFEN TABLETS [Suspect]
     Indication: PRODUCT USED FOR UNKNOWN INDICATION
     Route: 065
  3. FOSAMAX [Suspect]
     Indication: PRODUCT USED FOR UNKNOWN INDICATION
     Route: 065
  4. MOTRIN [Suspect]
  5. PERCOCET [Suspect]
  6. SULFA [Suspect]

REACTIONS (3)
  - DIARRHOEA [None]
  - HYPERSENSITIVITY [None]
  - RASH [None]
